FAERS Safety Report 8775268 (Version 1)
Quarter: 2012Q4

REPORT INFORMATION
  Report Type: 
  Country: US (occurrence: US)
  Receive Date: 20120910
  Receipt Date: 20120910
  Transmission Date: 20130627
  Serious: Yes (Hospitalization, Other)
  Sender: FDA-Public Use
  Company Number: US-AMGEN-USASP2012056126

PATIENT
  Age: 59 Year
  Sex: Male

DRUGS (1)
  1. ENBREL [Suspect]
     Indication: PSORIATIC ARTHROPATHY
     Dosage: 50 mg, qwk
     Route: 058
     Dates: start: 20070701, end: 201203

REACTIONS (11)
  - Angioplasty [Recovered/Resolved]
  - Spinal compression fracture [Not Recovered/Not Resolved]
  - Mobility decreased [Not Recovered/Not Resolved]
  - Hand fracture [Not Recovered/Not Resolved]
  - Bone pain [Not Recovered/Not Resolved]
  - Intervertebral disc protrusion [Not Recovered/Not Resolved]
  - Bunion [Recovered/Resolved]
  - Pain in extremity [Not Recovered/Not Resolved]
  - Myopathy [Not Recovered/Not Resolved]
  - Body height decreased [Not Recovered/Not Resolved]
  - Kyphosis [Unknown]
